FAERS Safety Report 8233299-4 (Version None)
Quarter: 2012Q1

REPORT INFORMATION
  Report Type: 
  Country: None (occurrence: None)
  Receive Date: 20120323
  Receipt Date: 20120323
  Transmission Date: 20120608
  Serious: No
  Sender: FDA-Public Use
  Company Number: None

PATIENT
  Sex: Male
  Weight: 71.6683 kg

DRUGS (1)
  1. PLAVIX [Suspect]

REACTIONS (2)
  - PRODUCT SOLUBILITY ABNORMAL [None]
  - THROAT IRRITATION [None]
